FAERS Safety Report 7827434-7 (Version None)
Quarter: 2011Q4

REPORT INFORMATION
  Report Type: 
  Country: None (occurrence: None)
  Receive Date: 20111020
  Receipt Date: 20111004
  Transmission Date: 20120403
  Serious: Yes (Hospitalization, Other)
  Sender: FDA-Public Use
  Company Number: US-BAYER-2011-095713

PATIENT
  Age: 73 Year
  Sex: Male
  Weight: 90 kg

DRUGS (17)
  1. LEUPROLIDE ACETATE [Concomitant]
     Dosage: Q 3 OR 4 MONTHS
     Route: 030
  2. ACETYLSALICYLIC ACID SRT [Suspect]
     Dosage: 325 MG, QD
     Route: 048
  3. ACETAMINOPHEN [Concomitant]
     Dosage: 2 DF, PRN
     Route: 048
  4. POLYCARBOPHIL CALCIUM [Concomitant]
     Dosage: 1 DF, BID
     Route: 048
  5. IBUPROFEN [Concomitant]
     Dosage: 200 MG, PRN
     Route: 048
  6. LANSOPRAZOLE [Concomitant]
     Dosage: DAILY DOSE 30 MG
     Route: 048
  7. AMLODIPINE [Concomitant]
     Dosage: 5 MG, QD
     Route: 048
  8. DOCETAXEL [Suspect]
     Dosage: UNK
     Route: 042
  9. DEXAMETHASONE [Concomitant]
     Dosage: 8 MG, BID
     Dates: start: 20110524, end: 20110526
  10. LISINOPRIL [Concomitant]
     Dosage: 5 MG, QD
     Route: 048
  11. HYDROCHLOROTHIAZIDE [Concomitant]
     Dosage: 25 MG, QD
     Route: 048
  12. PREDNISONE [Concomitant]
     Dosage: 1 DF, BID
     Dates: start: 20110525
  13. OGX-11 [Suspect]
     Indication: PROSTATE CANCER
     Dosage: 640 MG, OW
     Route: 042
     Dates: start: 20110518
  14. SINEMET [Concomitant]
     Dosage: 20-250 MG/ DAILY
     Route: 048
  15. SIMVASTATIN [Concomitant]
     Dosage: 40 MG, QD
     Route: 048
  16. CLOPIDOGREL [Suspect]
     Dosage: 75 MG, QD
     Route: 048
  17. MULTI-VITAMIN [Concomitant]
     Dosage: 1 DF, QD
     Route: 048

REACTIONS (3)
  - THROMBOCYTOPENIA [None]
  - ANAEMIA [None]
  - SUBDURAL HAEMATOMA [None]
